FAERS Safety Report 15977041 (Version 2)
Quarter: 2021Q1

REPORT INFORMATION
  Report Type: Spontaneous
  Country: US (occurrence: US)
  Receive Date: 20190218
  Receipt Date: 20210122
  Transmission Date: 20210419
  Serious: Yes (Disabling)
  Sender: FDA-Public Use
  Company Number: US-TEVA-2019-US-1008398

PATIENT
  Age: 41 Year
  Sex: Female

DRUGS (9)
  1. ALOXI [Concomitant]
     Active Substance: PALONOSETRON HYDROCHLORIDE
  2. EMEND [Concomitant]
     Active Substance: APREPITANT
  3. ZOLADEX [Concomitant]
     Active Substance: GOSERELIN ACETATE
     Dosage: GASERELIN ACETATE IMPLANT
     Route: 058
  4. LOVENOX [Concomitant]
     Active Substance: ENOXAPARIN SODIUM
     Dates: start: 20141024, end: 20141128
  5. CYTOXAN [Concomitant]
     Active Substance: CYCLOPHOSPHAMIDE
  6. TAXOTERE [Suspect]
     Active Substance: DOCETAXEL
     Indication: BREAST CANCER
     Route: 042
  7. DOCETAXEL SAGENT [Suspect]
     Active Substance: DOCETAXEL
     Indication: BREAST CANCER
     Route: 065
     Dates: start: 20140829, end: 20141115
  8. GRANIX [Concomitant]
     Active Substance: TBO-FILGRASTIM
     Dosage: DOSAGE : 480.007
  9. DEXAMETHASONE SODIUM PHOISPHATE [Concomitant]

REACTIONS (12)
  - Hair texture abnormal [Not Recovered/Not Resolved]
  - Thrombophlebitis superficial [Unknown]
  - Vitamin D deficiency [Unknown]
  - Chest pain [Unknown]
  - Madarosis [Not Recovered/Not Resolved]
  - Hair colour changes [Not Recovered/Not Resolved]
  - Dehydration [Not Recovered/Not Resolved]
  - Hot flush [Unknown]
  - Hypercoagulation [Unknown]
  - Alopecia areata [Not Recovered/Not Resolved]
  - Chest discomfort [Unknown]
  - Pain in extremity [Unknown]

NARRATIVE: CASE EVENT DATE: 2014
